FAERS Safety Report 10477916 (Version 3)
Quarter: 2014Q4

REPORT INFORMATION
  Report Type: Report from Study
  Country: US (occurrence: US)
  Receive Date: 20140926
  Receipt Date: 20141008
  Transmission Date: 20150528
  Serious: No
  Sender: FDA-Public Use
  Company Number: US-009507513-1408USA008029

PATIENT
  Age: 79 Year
  Sex: Male

DRUGS (4)
  1. PEMBROLIZUMAB. [Suspect]
     Active Substance: PEMBROLIZUMAB
     Dosage: 2 MG/KG, Q3W (TOTAL DAILY DOSE 189 MG)
     Route: 042
     Dates: start: 20140829, end: 20140829
  2. PEMBROLIZUMAB. [Suspect]
     Active Substance: PEMBROLIZUMAB
     Dosage: 2 MG/KG, Q3W (TOTAL DAILY DOSE 191 MG)
     Route: 042
     Dates: start: 20140808, end: 20140808
  3. PEMBROLIZUMAB. [Suspect]
     Active Substance: PEMBROLIZUMAB
     Indication: MALIGNANT MELANOMA
     Dosage: 2 MG/KG, Q3W (TOTAL DAILY DOSE 194 MG)
     Route: 042
     Dates: start: 20140626, end: 20140626
  4. PEMBROLIZUMAB. [Suspect]
     Active Substance: PEMBROLIZUMAB
     Dosage: 2 MG/KG, Q3W (TOTAL DAILY DOSE 190 MG)
     Route: 042
     Dates: start: 20140717, end: 20140717

REACTIONS (4)
  - Pruritus [Recovered/Resolved]
  - Blood bilirubin increased [Not Recovered/Not Resolved]
  - Diarrhoea [Not Recovered/Not Resolved]
  - Hyperglycaemia [Not Recovered/Not Resolved]

NARRATIVE: CASE EVENT DATE: 20140808
